FAERS Safety Report 18214206 (Version 2)
Quarter: 2020Q3

REPORT INFORMATION
  Report Type: Spontaneous
  Country: US (occurrence: US)
  Receive Date: 20200831
  Receipt Date: 20200925
  Transmission Date: 20201103
  Serious: No
  Sender: FDA-Public Use
  Company Number: US-GLAXOSMITHKLINE-US2020AMR170865

PATIENT
  Sex: Female

DRUGS (1)
  1. ZEJULA [Suspect]
     Active Substance: NIRAPARIB
     Indication: FALLOPIAN TUBE CANCER
     Dosage: 200 MG, QD
     Route: 048
     Dates: start: 20200804, end: 20200916

REACTIONS (6)
  - Extra dose administered [Unknown]
  - Hospice care [Unknown]
  - Constipation [Unknown]
  - Dyspepsia [Unknown]
  - Flatulence [Unknown]
  - Oropharyngeal pain [Unknown]
